FAERS Safety Report 10095940 (Version 2)
Quarter: 2014Q2

REPORT INFORMATION
  Report Type: Spontaneous
  Country: US (occurrence: US)
  Receive Date: 20140422
  Receipt Date: 20140422
  Transmission Date: 20141212
  Serious: No
  Sender: FDA-Public Use
  Company Number: US-GILEAD-2013-0076214

PATIENT
  Sex: Male
  Weight: 87.98 kg

DRUGS (19)
  1. LETAIRIS [Suspect]
     Indication: PULMONARY ARTERIAL HYPERTENSION
     Dosage: 5 MG, QD
     Route: 048
  2. LETAIRIS [Suspect]
     Dosage: 2.5 MG, QD
     Route: 048
  3. WARFARIN [Concomitant]
  4. ALLOPURINOL [Concomitant]
  5. ASPIRIN [Concomitant]
  6. BETAMETHASONE DIPROPIONATE [Concomitant]
  7. CARVEDILOL [Concomitant]
  8. CRESTOR [Concomitant]
  9. DIGOXIN [Concomitant]
  10. LOSARTAN POTASSIUM [Concomitant]
  11. METFORMIN HCL [Concomitant]
  12. OMEPRAZOLE [Concomitant]
  13. POTASSIUM CHLORIDE [Concomitant]
  14. PREDNISONE [Concomitant]
  15. PROAIR HFA [Concomitant]
  16. TORSEMIDE [Concomitant]
  17. TRAMADOL HCL [Concomitant]
  18. TRAZODONE HCL [Concomitant]
  19. VIAGRA [Concomitant]

REACTIONS (1)
  - Nasal congestion [Recovered/Resolved]
